FAERS Safety Report 20663661 (Version 2)
Quarter: 2022Q2

REPORT INFORMATION
  Report Type: Spontaneous
  Country: US (occurrence: None)
  Receive Date: 20220401
  Receipt Date: 20220520
  Transmission Date: 20220720
  Serious: No
  Sender: FDA-Public Use
  Company Number: US-Merz Pharmaceuticals GmbH-22-00885

PATIENT
  Sex: Male

DRUGS (3)
  1. XEOMIN [Suspect]
     Active Substance: INCOBOTULINUMTOXINA
     Indication: Dystonia
  2. XEOMIN [Suspect]
     Active Substance: INCOBOTULINUMTOXINA
     Dates: start: 201604, end: 201604
  3. XEOMIN [Suspect]
     Active Substance: INCOBOTULINUMTOXINA

REACTIONS (2)
  - Speech disorder [Unknown]
  - Pain [Unknown]
